FAERS Safety Report 18069148 (Version 1)
Quarter: 2020Q3

REPORT INFORMATION
  Report Type: Spontaneous
  Country: US (occurrence: US)
  Receive Date: 20200725
  Receipt Date: 20200725
  Transmission Date: 20201103
  Serious: No
  Sender: FDA-Public Use
  Company Number: US-009507513-2007USA006427

PATIENT
  Sex: Female

DRUGS (1)
  1. SINEMET [Suspect]
     Active Substance: CARBIDOPA\LEVODOPA
     Indication: TREMOR
     Dosage: TID
     Route: 048

REACTIONS (5)
  - Wrong technique in product usage process [Unknown]
  - Insomnia [Unknown]
  - Product communication issue [Unknown]
  - Nausea [Unknown]
  - Product residue present [Unknown]
